FAERS Safety Report 17676602 (Version 2)
Quarter: 2020Q2

REPORT INFORMATION
  Report Type: Report from Study
  Country: None (occurrence: US)
  Receive Date: 20200416
  Receipt Date: 20200417
  Transmission Date: 20200714
  Serious: Yes (Hospitalization, Other)
  Sender: FDA-Public Use
  Company Number: US-ABBVIE-20K-163-3362111-00

PATIENT
  Age: 83 Year
  Sex: Male
  Weight: 62.2 kg

DRUGS (5)
  1. PLAQUENIL [Concomitant]
     Active Substance: HYDROXYCHLOROQUINE SULFATE
     Indication: RHEUMATOID ARTHRITIS
  2. RINVOQ [Suspect]
     Active Substance: UPADACITINIB
     Indication: RHEUMATOID ARTHRITIS
     Route: 048
     Dates: start: 20200101, end: 20200107
  3. TYLENOL [Concomitant]
     Active Substance: ACETAMINOPHEN
     Indication: ARTHRALGIA
  4. SYNTHROID [Concomitant]
     Active Substance: LEVOTHYROXINE SODIUM
     Indication: THYROID DISORDER
  5. PREDNISONE. [Concomitant]
     Active Substance: PREDNISONE
     Indication: RHEUMATOID ARTHRITIS

REACTIONS (13)
  - Haemoglobin decreased [Recovered/Resolved]
  - Asthenia [Unknown]
  - Gait disturbance [Recovered/Resolved]
  - Melaena [Recovered/Resolved]
  - General physical condition abnormal [Recovered/Resolved]
  - Chest discomfort [Unknown]
  - Musculoskeletal discomfort [Unknown]
  - Head discomfort [Recovered/Resolved]
  - Polyp [Unknown]
  - Blood creatinine increased [Recovered/Resolved]
  - Gastric haemorrhage [Recovered/Resolved]
  - Chest discomfort [Recovered/Resolved]
  - Fatigue [Unknown]

NARRATIVE: CASE EVENT DATE: 2020
